FAERS Safety Report 5482382-5 (Version None)
Quarter: 2007Q4

REPORT INFORMATION
  Report Type: 
  Country: None (occurrence: None)
  Receive Date: 20071011
  Receipt Date: 20071001
  Transmission Date: 20080405
  Serious: Yes (Life-Threatening, Hospitalization)
  Sender: FDA-Public Use
  Company Number: B0224661A

PATIENT
  Age: 89 Year
  Sex: Female

DRUGS (9)
  1. AUGMENTIN '125' [Suspect]
     Dosage: 1G TWICE PER DAY
     Route: 042
     Dates: start: 19990218, end: 19990223
  2. CORDARONE [Concomitant]
     Dosage: 200MG PER DAY
     Route: 048
  3. DIGOXIN [Concomitant]
     Dosage: .25MG PER DAY
     Route: 048
  4. LASIX [Concomitant]
     Dosage: 20MG PER DAY
     Route: 048
     Dates: start: 19990216, end: 19990219
  5. NITRODERM [Concomitant]
     Route: 062
     Dates: start: 19990216
  6. DIFFU K [Concomitant]
     Route: 048
  7. LEVOTHYROX [Concomitant]
     Route: 048
  8. OFLOCET [Concomitant]
     Dates: start: 19990219
  9. TRIFLUCAN [Concomitant]
     Dates: start: 19990219

REACTIONS (7)
  - AGRANULOCYTOSIS [None]
  - ANAEMIA [None]
  - CHOLECYSTITIS [None]
  - CHOLELITHIASIS [None]
  - JAUNDICE [None]
  - LIVER DISORDER [None]
  - THROMBOCYTOPENIA [None]
